FAERS Safety Report 23369291 (Version 1)
Quarter: 2024Q1

REPORT INFORMATION
  Report Type: Report from Study
  Country: PL (occurrence: PL)
  Receive Date: 20240105
  Receipt Date: 20240105
  Transmission Date: 20240409
  Serious: Yes (Other)
  Sender: FDA-Public Use
  Company Number: PL-AUROBINDO-AUR-APL-2023-073993

PATIENT
  Age: 71 Year
  Sex: Male

DRUGS (17)
  1. GABAPENTIN [Suspect]
     Active Substance: GABAPENTIN
     Indication: Trigeminal neuralgia
     Dosage: UNK
     Route: 065
  2. NAPROXEN [Suspect]
     Active Substance: NAPROXEN
     Indication: Eagle^s syndrome
     Dosage: 250 MILLIGRAM (PER NIGHT)
     Route: 065
  3. NAPROXEN [Suspect]
     Active Substance: NAPROXEN
     Indication: Temporomandibular joint syndrome
  4. NAPROXEN [Suspect]
     Active Substance: NAPROXEN
     Indication: Trigeminal neuralgia
  5. TRAMADOL [Suspect]
     Active Substance: TRAMADOL\TRAMADOL HYDROCHLORIDE
     Indication: Radiation associated pain
     Route: 065
  6. BACLOFEN [Suspect]
     Active Substance: BACLOFEN
     Indication: Product used for unknown indication
     Dosage: 5 MILLIGRAM
     Route: 065
  7. CARBAMAZEPINE [Suspect]
     Active Substance: CARBAMAZEPINE
     Indication: Trigeminal neuralgia
     Dosage: UNK
     Route: 065
  8. PREGABALIN [Suspect]
     Active Substance: PREGABALIN
     Indication: Temporomandibular joint syndrome
     Dosage: 75 MILLIGRAM, ONCE A DAY (1 TABLET PER NIGHT)
     Route: 065
  9. PREGABALIN [Suspect]
     Active Substance: PREGABALIN
     Indication: Eagle^s syndrome
     Dosage: 150 MILLIGRAM, ONCE A DAY (AFTER A WEEK 150 MG PER NIGHT)
     Route: 065
  10. PREGABALIN [Suspect]
     Active Substance: PREGABALIN
     Indication: Trigeminal neuropathy
  11. PREGABALIN [Suspect]
     Active Substance: PREGABALIN
     Indication: Product used for unknown indication
     Dosage: 75 MILLIGRAM
     Route: 065
  12. BACLOFEN [Concomitant]
     Active Substance: BACLOFEN
     Indication: Eagle^s syndrome
     Dosage: 10 MILLIGRAM (AFTER A WEEK 1 TBL. PER NIGHT)
     Route: 065
  13. BACLOFEN [Concomitant]
     Active Substance: BACLOFEN
     Dosage: 10 MILLIGRAM (10 MG, 2 TBL. IN THE EVENING, WAS MAINTAINED)
     Route: 065
  14. BACLOFEN [Concomitant]
     Active Substance: BACLOFEN
     Dosage: 10 MILLIGRAM (10 MG 1/2 TBL. PER NIGHT,)
     Route: 065
  15. DEXAMETHASONE [Concomitant]
     Active Substance: DEXAMETHASONE
     Indication: Coccydynia
     Dosage: 1 MILLIGRAM
     Route: 065
  16. LIDOCAINE [Concomitant]
     Active Substance: LIDOCAINE
     Indication: Coccydynia
     Dosage: 5 MILLIGRAM
  17. ACETAMINOPHEN\TRAMADOL [Concomitant]
     Active Substance: ACETAMINOPHEN\TRAMADOL
     Indication: Pain
     Dosage: UNK (2-3 TIMES A WEEK)
     Route: 065

REACTIONS (5)
  - Balance disorder [Unknown]
  - Confusional state [Unknown]
  - Disturbance in attention [Unknown]
  - Drug ineffective [Unknown]
  - Therapeutic product effect incomplete [Unknown]
